FAERS Safety Report 6644261-7 (Version None)
Quarter: 2010Q1

REPORT INFORMATION
  Report Type: 
  Country: None (occurrence: None)
  Receive Date: 20100319
  Receipt Date: 20100319
  Transmission Date: 20100710
  Serious: Yes (Life-Threatening, Other)
  Sender: FDA-Public Use
  Company Number: None

PATIENT
  Sex: Female
  Weight: 74.8435 kg

DRUGS (4)
  1. DIVALPROX 125MG TAB TEV [Suspect]
     Indication: HEADACHE
     Dosage: 125 MG DAILY P.O.
     Route: 048
     Dates: start: 20091124, end: 20091226
  2. DIVALPROX 125MG TAB TEV [Suspect]
     Indication: PROPHYLAXIS
     Dosage: 125 MG DAILY P.O.
     Route: 048
     Dates: start: 20091124, end: 20091226
  3. TOPIRAMATE [Suspect]
     Indication: HEADACHE
     Dosage: 15 MG DAILY PO
     Route: 048
     Dates: start: 20091217, end: 20100107
  4. TOPIRAMATE [Suspect]
     Indication: PROPHYLAXIS
     Dosage: 15 MG DAILY PO
     Route: 048
     Dates: start: 20091217, end: 20100107

REACTIONS (5)
  - AGITATION [None]
  - ANGER [None]
  - MOOD ALTERED [None]
  - SCREAMING [None]
  - SUICIDAL IDEATION [None]
